FAERS Safety Report 7149359-5 (Version None)
Quarter: 2010Q4

REPORT INFORMATION
  Report Type: 
  Country: None (occurrence: None)
  Receive Date: 20101209
  Receipt Date: 20100819
  Transmission Date: 20110411
  Serious: No
  Sender: FDA-Public Use
  Company Number: US-KINGPHARMUSA00001-K201001030

PATIENT
  Age: 61 Year
  Sex: Female

DRUGS (5)
  1. EMBEDA [Suspect]
     Indication: PAIN
     Dosage: 100 MG, QD
     Route: 048
     Dates: start: 20100608, end: 20100707
  2. EMBEDA [Suspect]
     Indication: SPINAL LAMINECTOMY
  3. GLYBURIDE [Concomitant]
  4. ESCITALOPRAM [Concomitant]
  5. ANTIHYPERTENSIVES [Concomitant]
     Indication: BLOOD PRESSURE ABNORMAL
     Dosage: UNK

REACTIONS (1)
  - OEDEMA PERIPHERAL [None]
